FAERS Safety Report 9608380 (Version 38)
Quarter: 2018Q3

REPORT INFORMATION
  Report Type: Report from Study
  Country: CA (occurrence: CA)
  Receive Date: 20131009
  Receipt Date: 20180813
  Transmission Date: 20181010
  Serious: Yes (Other)
  Sender: FDA-Public Use
  Company Number: PHHY2013CA026241

PATIENT
  Age: 47 Year
  Sex: Female

DRUGS (10)
  1. SANDOSTATIN [Suspect]
     Active Substance: OCTREOTIDE ACETATE
     Indication: PANCREATIC NEUROENDOCRINE TUMOUR
     Dosage: UNK, ONCE/SINGLE (TEST DOSE)
     Route: 058
     Dates: start: 20110615, end: 20110615
  2. SANDOSTATIN LAR DEPOT [Suspect]
     Active Substance: OCTREOTIDE ACETATE
     Indication: PANCREATIC NEUROENDOCRINE TUMOUR
     Dosage: 30 MG, QMO
     Route: 030
     Dates: start: 20110627
  3. AFINITOR [Suspect]
     Active Substance: EVEROLIMUS
     Indication: PANCREATIC NEUROENDOCRINE TUMOUR METASTATIC
     Dosage: 10 MG, QD
     Route: 048
     Dates: start: 20121010, end: 20160111
  4. SYNTHROID [Concomitant]
     Active Substance: LEVOTHYROXINE SODIUM
     Indication: PRODUCT USED FOR UNKNOWN INDICATION
     Dosage: 75 UG, UNK
     Route: 048
  5. JAMP?VITAMINE D3 [Concomitant]
     Indication: PRODUCT USED FOR UNKNOWN INDICATION
     Dosage: 10000 IU, QW
     Route: 048
  6. SANDOSTATIN LAR DEPOT [Suspect]
     Active Substance: OCTREOTIDE ACETATE
     Dosage: 30 MG, QMO
     Route: 030
     Dates: start: 20150430
  7. MICROLET [Concomitant]
     Indication: PRODUCT USED FOR UNKNOWN INDICATION
     Dosage: FREQUENCY AS PER MD DIRECTIVE
     Route: 065
  8. RAMIPRIL. [Suspect]
     Active Substance: RAMIPRIL
     Indication: PRODUCT USED FOR UNKNOWN INDICATION
     Dosage: 2.5 MG, QD
     Route: 048
  9. CONTOUR [Concomitant]
     Indication: PRODUCT USED FOR UNKNOWN INDICATION
     Dosage: (AS PER MD DIRECTIVE)
     Route: 065
  10. CO ROSUVASTATIN [Concomitant]
     Active Substance: ROSUVASTATIN
     Indication: BLOOD CHOLESTEROL ABNORMAL
     Dosage: 20 MG, QD
     Route: 048

REACTIONS (36)
  - Eyelid oedema [Unknown]
  - Dysphagia [Unknown]
  - Tenderness [Recovered/Resolved]
  - Dry skin [Unknown]
  - Dysphonia [Recovered/Resolved]
  - Blood pressure diastolic decreased [Unknown]
  - Dyspnoea [Unknown]
  - Ovarian cyst [Unknown]
  - Blood pressure systolic increased [Unknown]
  - Fatigue [Unknown]
  - Hypoxia [Unknown]
  - Muscle contractions involuntary [Unknown]
  - Hypotension [Unknown]
  - Lung disorder [Unknown]
  - Needle issue [Unknown]
  - Pneumonia [Recovering/Resolving]
  - Anxiety [Unknown]
  - Skin discolouration [Unknown]
  - Erythema [Unknown]
  - Nasopharyngitis [Recovering/Resolving]
  - Body temperature decreased [Unknown]
  - Oropharyngeal pain [Unknown]
  - Abdominal pain upper [Unknown]
  - Cough [Recovered/Resolved]
  - Musculoskeletal pain [Recovered/Resolved]
  - Injection site induration [Unknown]
  - Injection site warmth [Unknown]
  - Injection site pain [Recovered/Resolved]
  - Nasopharyngitis [Recovered/Resolved]
  - Diabetes mellitus [Unknown]
  - Skin plaque [Unknown]
  - Ingrowing nail [Recovering/Resolving]
  - Rhinorrhoea [Recovered/Resolved]
  - Rhinorrhoea [Unknown]
  - Injection site mass [Unknown]
  - Injection site hypersensitivity [Unknown]

NARRATIVE: CASE EVENT DATE: 20131107
